FAERS Safety Report 7225611-X (Version None)
Quarter: 2011Q1

REPORT INFORMATION
  Report Type: 
  Country: None (occurrence: None)
  Receive Date: 20110110
  Receipt Date: 20110110
  Transmission Date: 20110831
  Serious: Yes (Life-Threatening, Hospitalization)
  Sender: FDA-Public Use
  Company Number: None

PATIENT
  Sex: Male
  Weight: 10 kg

DRUGS (1)
  1. TYLENOL-500 [Suspect]
     Indication: PYREXIA
     Dosage: 5 ML -500 MG- EVERY 4 HOURS PO
     Route: 048

REACTIONS (6)
  - MEDICATION ERROR [None]
  - OVERDOSE [None]
  - COAGULOPATHY [None]
  - ACUTE HEPATIC FAILURE [None]
  - LETHARGY [None]
  - HYPOGLYCAEMIA [None]
